FAERS Safety Report 20454995 (Version 1)
Quarter: 2022Q1

REPORT INFORMATION
  Report Type: Spontaneous
  Country: CA (occurrence: CA)
  Receive Date: 20220210
  Receipt Date: 20220210
  Transmission Date: 20220423
  Serious: Yes (Other)
  Sender: FDA-Public Use
  Company Number: CA-TEVA-2022-CA-2006067

PATIENT
  Age: 67 Year
  Sex: Male

DRUGS (2)
  1. EMTRICITABINE\TENOFOVIR DISOPROXIL [Suspect]
     Active Substance: EMTRICITABINE\TENOFOVIR DISOPROXIL
     Indication: Product used for unknown indication
     Route: 065
  2. BICTEGRAVIR SODIUM\EMTRICITABINE\TENOFOVIR ALAFENAMIDE FUMARATE [Suspect]
     Active Substance: BICTEGRAVIR SODIUM\EMTRICITABINE\TENOFOVIR ALAFENAMIDE FUMARATE
     Indication: Product used for unknown indication
     Route: 065

REACTIONS (2)
  - Dysphagia [Not Recovered/Not Resolved]
  - Throat cancer [Not Recovered/Not Resolved]
